FAERS Safety Report 20604779 (Version 1)
Quarter: 2022Q1

REPORT INFORMATION
  Report Type: Spontaneous
  Country: IN (occurrence: IN)
  Receive Date: 20220317
  Receipt Date: 20220317
  Transmission Date: 20220424
  Serious: Yes (Hospitalization, Other)
  Sender: FDA-Public Use
  Company Number: IN-SUN PHARMACEUTICAL INDUSTRIES LTD-2022R1-329398

PATIENT
  Age: 58 Year
  Sex: Male

DRUGS (1)
  1. MINOXIDIL [Suspect]
     Active Substance: MINOXIDIL
     Indication: Product used for unknown indication
     Dosage: UNK
     Route: 048

REACTIONS (6)
  - Tachycardia [Recovering/Resolving]
  - Accidental exposure to product [Unknown]
  - Atrial fibrillation [Recovered/Resolved]
  - Hypotension [Recovering/Resolving]
  - Acute pulmonary oedema [Recovering/Resolving]
  - Acute kidney injury [Recovered/Resolved]
